FAERS Safety Report 7295864-0 (Version None)
Quarter: 2011Q1

REPORT INFORMATION
  Report Type: 
  Country: None (occurrence: None)
  Receive Date: 20110216
  Receipt Date: 20110110
  Transmission Date: 20110831
  Serious: No
  Sender: FDA-Public Use
  Company Number: US-ABBOTT-11P-163-0696267-00

PATIENT
  Sex: Female
  Weight: 69.008 kg

DRUGS (10)
  1. ASPIRIN [Concomitant]
     Indication: PRODUCT USED FOR UNKNOWN INDICATION
  2. VIT D [Concomitant]
     Indication: PRODUCT USED FOR UNKNOWN INDICATION
  3. FISH OIL [Concomitant]
     Indication: PRODUCT USED FOR UNKNOWN INDICATION
  4. M.V.I. [Concomitant]
     Indication: PRODUCT USED FOR UNKNOWN INDICATION
  5. ALLEGRA [Concomitant]
     Indication: PRODUCT USED FOR UNKNOWN INDICATION
  6. EFFEXOR [Concomitant]
     Indication: PRODUCT USED FOR UNKNOWN INDICATION
  7. CALCIUM [Concomitant]
     Indication: PRODUCT USED FOR UNKNOWN INDICATION
  8. SIMCOR [Suspect]
     Dosage: 500/20MG; CANNOT TOLERATE 1000/40MG
  9. TRICOR [Concomitant]
     Indication: PRODUCT USED FOR UNKNOWN INDICATION
  10. SIMCOR [Suspect]
     Indication: HYPERLIPIDAEMIA

REACTIONS (3)
  - FLUSHING [None]
  - FEELING HOT [None]
  - INCORRECT DOSE ADMINISTERED [None]
